FAERS Safety Report 8615779-2 (Version None)
Quarter: 2012Q3

REPORT INFORMATION
  Report Type: 
  Country: None (occurrence: None)
  Receive Date: 20120823
  Receipt Date: 20120820
  Transmission Date: 20120928
  Serious: Yes (Other)
  Sender: FDA-Public Use
  Company Number: JP-PFIZER INC-2012187188

PATIENT
  Age: 73 Year
  Sex: Male
  Weight: 57 kg

DRUGS (2)
  1. LYRICA [Suspect]
     Dosage: 150 MG, DAILY
     Route: 048
     Dates: end: 20120801
  2. VITAMIN B12 [Suspect]
     Dosage: 1500 MICROG DAILY
     Route: 048

REACTIONS (3)
  - DIZZINESS [None]
  - NORMOCHROMIC NORMOCYTIC ANAEMIA [None]
  - WHITE BLOOD CELL COUNT DECREASED [None]
